FAERS Safety Report 4955800-6 (Version None)
Quarter: 2006Q1

REPORT INFORMATION
  Report Type: 
  Country: None (occurrence: None)
  Receive Date: 20060328
  Receipt Date: 20060317
  Transmission Date: 20060701
  Serious: Yes (Hospitalization)
  Sender: FDA-Public Use
  Company Number: US-JNJFOC-20060305826

PATIENT
  Sex: Male

DRUGS (7)
  1. DURAGESIC-100 [Suspect]
     Route: 062
  2. PERCOCET [Concomitant]
     Route: 048
  3. PERCOCET [Concomitant]
     Indication: PAIN
     Route: 048
  4. METHADONE HCL [Concomitant]
     Indication: PAIN
     Route: 048
  5. PANCREASE [Concomitant]
     Route: 048
  6. LIPITOR [Concomitant]
     Route: 048
  7. MORPHINE PUMP [Concomitant]
     Indication: PAIN
     Route: 050

REACTIONS (2)
  - ARTERIAL OCCLUSIVE DISEASE [None]
  - DRUG EFFECT DECREASED [None]
